FAERS Safety Report 24981724 (Version 2)
Quarter: 2025Q2

REPORT INFORMATION
  Report Type: Report from Study
  Country: US (occurrence: US)
  Receive Date: 20250218
  Receipt Date: 20250522
  Transmission Date: 20250716
  Serious: Yes (Other)
  Sender: ROCHE
  Company Number: US-ROCHE-10000205510

PATIENT
  Age: 45 Year
  Sex: Male

DRUGS (1)
  1. AVASTIN [Suspect]
     Active Substance: BEVACIZUMAB
     Indication: Colorectal cancer metastatic
     Dosage: INFUSE 1600MG INTRAVENOUSLY EVERY 2 WEEK(S)
     Route: 042

REACTIONS (2)
  - Hernia [Unknown]
  - Overweight [Unknown]
